FAERS Safety Report 6274661-9 (Version None)
Quarter: 2009Q3

REPORT INFORMATION
  Report Type: 
  Country: None (occurrence: None)
  Receive Date: 20090717
  Receipt Date: 20090714
  Transmission Date: 20100115
  Serious: Yes (Death)
  Sender: FDA-Public Use
  Company Number: 2009US002573

PATIENT
  Age: 51 Year
  Sex: Female

DRUGS (15)
  1. PROGRAF [Suspect]
     Indication: RENAL TRANSPLANT
     Dosage: 2 MG, BID, ORAL
     Route: 048
  2. WELBUTRIN (BUPROPION HYDROCHLORIDE) [Concomitant]
  3. ASPIRIN [Concomitant]
  4. PRILOSEC [Concomitant]
  5. PHOSLO [Concomitant]
  6. TRAZODONE HCL [Concomitant]
  7. VICDON (HYDROCODONE BITARTRATE) [Concomitant]
  8. KLONOPIN [Concomitant]
  9. AMIODARONE HCL [Concomitant]
  10. SENSIPAR [Concomitant]
  11. ZEMPLAR [Concomitant]
  12. EPOGEN [Concomitant]
  13. HEPARIN [Concomitant]
  14. VENOFER [Concomitant]
  15. MIDODRINE HYDROCHLORIDE [Concomitant]

REACTIONS (1)
  - DEATH [None]
